FAERS Safety Report 16506873 (Version 1)
Quarter: 2019Q3

REPORT INFORMATION
  Report Type: Report from Study
  Country: US (occurrence: US)
  Receive Date: 20190701
  Receipt Date: 20190701
  Transmission Date: 20191004
  Serious: Yes (Other)
  Sender: FDA-Public Use
  Company Number: US-ALEXION PHARMACEUTICALS INC.-A201909663

PATIENT
  Sex: Female

DRUGS (1)
  1. SOLIRIS [Suspect]
     Active Substance: ECULIZUMAB
     Indication: ATYPICAL HAEMOLYTIC URAEMIC SYNDROME
     Route: 065

REACTIONS (16)
  - Anion gap increased [Unknown]
  - Haemoglobin decreased [Unknown]
  - Asthenia [Unknown]
  - Blood creatinine increased [Unknown]
  - Mean platelet volume decreased [Unknown]
  - Mean cell volume increased [Unknown]
  - White blood cell count increased [Unknown]
  - Blood urea increased [Unknown]
  - Blood glucose increased [Unknown]
  - Red blood cell count decreased [Unknown]
  - Mean cell haemoglobin increased [Unknown]
  - Urinary tract infection pseudomonal [Recovered/Resolved]
  - Red cell distribution width increased [Unknown]
  - Haematocrit decreased [Unknown]
  - Nucleated red cells [Unknown]
  - Carbon dioxide decreased [Unknown]

NARRATIVE: CASE EVENT DATE: 20190620
